FAERS Safety Report 19883999 (Version 1)
Quarter: 2021Q3

REPORT INFORMATION
  Report Type: Spontaneous
  Country: GB (occurrence: GB)
  Receive Date: 20210927
  Receipt Date: 20210927
  Transmission Date: 20211014
  Serious: Yes (Death, Hospitalization)
  Sender: FDA-Public Use
  Company Number: GB-DRREDDYS-SPO/UKI/21/0139092

PATIENT
  Age: 71 Year
  Sex: Female
  Weight: 54 kg

DRUGS (42)
  1. AMLODIPINE [Suspect]
     Active Substance: AMLODIPINE BESYLATE
     Indication: PRODUCT USED FOR UNKNOWN INDICATION
  2. AMLODIPINE [Suspect]
     Active Substance: AMLODIPINE BESYLATE
     Indication: HYPERTENSION
  3. LINEZOLID. [Suspect]
     Active Substance: LINEZOLID
     Indication: NEUTROPENIC SEPSIS
     Dates: start: 20200830
  4. ATEZOLIZUMAB. [Suspect]
     Active Substance: ATEZOLIZUMAB
     Indication: TRANSITIONAL CELL CARCINOMA
     Dosage: MOST RECENT DOSE OF ATEZOLIZUMAB PRIOR TO ADVERSE EVENT (NAUSEA) ONSET ON 19/AUG/2020.
     Route: 041
     Dates: start: 20200729
  5. ATEZOLIZUMAB. [Suspect]
     Active Substance: ATEZOLIZUMAB
     Indication: NON-SMALL CELL LUNG CANCER
     Route: 042
  6. ETOPOSIDE. [Suspect]
     Active Substance: ETOPOSIDE
     Indication: NON-SMALL CELL LUNG CANCER
     Route: 048
     Dates: start: 20200730
  7. ZOPICLONE [Suspect]
     Active Substance: ZOPICLONE
     Indication: PROPHYLAXIS
     Dates: start: 20200731
  8. CARBOPLATIN. [Suspect]
     Active Substance: CARBOPLATIN
     Indication: NON-SMALL CELL LUNG CANCER
     Dates: start: 20200729
  9. CLOPIDOGREL [Suspect]
     Active Substance: CLOPIDOGREL BISULFATE
     Indication: HYPERTENSION
  10. CYCLIZINE [Suspect]
     Active Substance: CYCLIZINE
     Indication: NEUTROPENIC SEPSIS
     Dosage: 1 IN 0.25 DAY
  11. FLUCONAZOLE. [Suspect]
     Active Substance: FLUCONAZOLE
     Indication: CANDIDA INFECTION
  12. LANSOPRAZOLE. [Suspect]
     Active Substance: LANSOPRAZOLE
     Indication: PROPHYLAXIS
     Dates: start: 20170101
  13. MORPHINE SULPHATE [Suspect]
     Active Substance: MORPHINE SULFATE
     Indication: PRODUCT USED FOR UNKNOWN INDICATION
     Dates: start: 20200825
  14. ORAMORPH [Suspect]
     Active Substance: MORPHINE SULFATE
     Indication: PAIN
  15. SOLPADOL [CODEINE PHOSPHATE/PARACETAMOL] [Suspect]
     Active Substance: ACETAMINOPHEN\CODEINE PHOSPHATE
     Indication: PAIN
  16. TIOTROPIUM [Suspect]
     Active Substance: TIOTROPIUM
     Indication: PRODUCT USED FOR UNKNOWN INDICATION
  17. CIPROFLOXACIN. [Suspect]
     Active Substance: CIPROFLOXACIN
     Indication: PROPHYLAXIS
     Dates: start: 20200827
  18. CLOPIDOGREL [Suspect]
     Active Substance: CLOPIDOGREL BISULFATE
     Indication: PRODUCT USED FOR UNKNOWN INDICATION
  19. DEXAMETHASONE. [Suspect]
     Active Substance: DEXAMETHASONE
     Indication: DYSPHAGIA
     Dates: start: 20200826
  20. FORMOTEROL [Suspect]
     Active Substance: FORMOTEROL
     Indication: PRODUCT USED FOR UNKNOWN INDICATION
     Dates: start: 20200301
  21. MORPHINE SULPHATE [Suspect]
     Active Substance: MORPHINE SULFATE
     Indication: PROPHYLAXIS
     Dates: start: 20200727
  22. SALBUTAMOL [Suspect]
     Active Substance: ALBUTEROL
     Indication: PROPHYLAXIS
  23. SOLPADOL [CODEINE PHOSPHATE/PARACETAMOL] [Suspect]
     Active Substance: ACETAMINOPHEN\CODEINE PHOSPHATE
     Indication: HEADACHE
  24. TIOTROPIUM [Suspect]
     Active Substance: TIOTROPIUM
     Indication: CHRONIC OBSTRUCTIVE PULMONARY DISEASE
  25. VENLAFAXINE [Suspect]
     Active Substance: VENLAFAXINE HYDROCHLORIDE
     Indication: PRODUCT USED FOR UNKNOWN INDICATION
  26. MAGNESIUM [Concomitant]
     Active Substance: MAGNESIUM
     Indication: PRODUCT USED FOR UNKNOWN INDICATION
     Dates: start: 20200819, end: 20200819
  27. SANDO?K [Concomitant]
     Indication: PROPHYLAXIS
     Dates: start: 20200819
  28. AMOXICILLIN. [Suspect]
     Active Substance: AMOXICILLIN
     Dates: start: 20200810, end: 20200816
  29. MORPHINE SULPHATE [Suspect]
     Active Substance: MORPHINE SULFATE
     Indication: PAIN
     Dates: start: 20200731
  30. SOLPADOL [CODEINE PHOSPHATE/PARACETAMOL] [Suspect]
     Active Substance: ACETAMINOPHEN\CODEINE PHOSPHATE
  31. VENLAFAXINE [Suspect]
     Active Substance: VENLAFAXINE HYDROCHLORIDE
     Indication: DEPRESSION
     Dates: start: 20200820
  32. METOCLOPRAMIDE. [Concomitant]
     Active Substance: METOCLOPRAMIDE
     Indication: VOMITING
  33. AMOXICILLIN. [Suspect]
     Active Substance: AMOXICILLIN
     Indication: NON-SMALL CELL LUNG CANCER
     Dates: start: 20200810, end: 20200816
  34. ORAMORPH [Suspect]
     Active Substance: MORPHINE SULFATE
     Indication: PRODUCT USED FOR UNKNOWN INDICATION
     Dates: start: 20200727
  35. LACTULOSE. [Suspect]
     Active Substance: LACTULOSE
     Indication: PROPHYLAXIS
  36. SANDO?K [Concomitant]
     Indication: PROPHYLAXIS
     Dates: start: 20200828, end: 20200901
  37. CYCLIZINE [Suspect]
     Active Substance: CYCLIZINE
     Indication: VOMITING
     Dosage: TIME INTERVAL:
  38. DIFFLAM [BENZYDAMINE HYDROCHLORIDE] [Suspect]
     Active Substance: BENZYDAMINE HYDROCHLORIDE
     Indication: PROPHYLAXIS
     Dates: start: 20200819
  39. VORICONAZOLE. [Suspect]
     Active Substance: VORICONAZOLE
     Indication: NEUTROPENIC SEPSIS
     Dates: start: 20200830
  40. ETOPOSIDE. [Suspect]
     Active Substance: ETOPOSIDE
     Dates: start: 20200729
  41. FORMOTEROL [Suspect]
     Active Substance: FORMOTEROL
     Indication: HYPERTENSION
  42. PHOSPHATE ION [Concomitant]
     Active Substance: PHOSPHATE ION
     Indication: PRODUCT USED FOR UNKNOWN INDICATION
     Dates: start: 20200825, end: 20200825

REACTIONS (24)
  - Hypokalaemia [Recovered/Resolved]
  - Neutrophil count decreased [Unknown]
  - Hypomagnesaemia [Recovered/Resolved]
  - Diarrhoea [Recovered/Resolved]
  - Asthenia [Unknown]
  - Mucosal inflammation [Not Recovered/Not Resolved]
  - Dehydration [Not Recovered/Not Resolved]
  - Anaemia [Not Recovered/Not Resolved]
  - Nervous system disorder [Not Recovered/Not Resolved]
  - Headache [Not Recovered/Not Resolved]
  - Neutropenic sepsis [Not Recovered/Not Resolved]
  - Depression [Not Recovered/Not Resolved]
  - Skin candida [Not Recovered/Not Resolved]
  - Product use in unapproved indication [Unknown]
  - Nausea [Recovered/Resolved]
  - Dyspnoea [Not Recovered/Not Resolved]
  - Gait disturbance [Unknown]
  - Constipation [Not Recovered/Not Resolved]
  - Death [Fatal]
  - Decreased appetite [Unknown]
  - Mouth ulceration [Recovered/Resolved]
  - Dysphagia [Not Recovered/Not Resolved]
  - Productive cough [Not Recovered/Not Resolved]
  - Vomiting [Not Recovered/Not Resolved]

NARRATIVE: CASE EVENT DATE: 20200730
